FAERS Safety Report 13829799 (Version 2)
Quarter: 2017Q3

REPORT INFORMATION
  Report Type: Report from Study
  Country: VE (occurrence: VE)
  Receive Date: 20170803
  Receipt Date: 20170807
  Transmission Date: 20171127
  Serious: Yes (Life-Threatening, Other)
  Sender: FDA-Public Use
  Company Number: PHHY2017VE111634

PATIENT
  Sex: Female

DRUGS (6)
  1. TEGRETOL [Suspect]
     Active Substance: CARBAMAZEPINE
     Indication: EPILEPSY
     Dosage: UNK, BID (MORNING AND NIGHT)
     Route: 065
  2. TEGRETOL [Suspect]
     Active Substance: CARBAMAZEPINE
     Indication: EPILEPSY
     Route: 065
  3. TRILEPTAL [Suspect]
     Active Substance: OXCARBAZEPINE
     Indication: EPILEPSY
     Route: 048
  4. TEGRETOL [Suspect]
     Active Substance: CARBAMAZEPINE
     Indication: EPILEPTIC ENCEPHALOPATHY
     Dosage: 800 MG, QD
     Route: 048
     Dates: start: 2001
  5. TEGRETOL [Suspect]
     Active Substance: CARBAMAZEPINE
     Indication: ATONIC SEIZURES
  6. CLONAZEPAM. [Concomitant]
     Active Substance: CLONAZEPAM
     Indication: PRODUCT USED FOR UNKNOWN INDICATION
     Dosage: 2 DF, QD (ONE IN THE MORNING AND ONE AT NIGHT)
     Route: 065

REACTIONS (29)
  - Nasal disorder [Unknown]
  - Hypertelorism of orbit [Unknown]
  - General physical health deterioration [Unknown]
  - Abnormal behaviour [Unknown]
  - Reading disorder [Unknown]
  - Incontinence [Unknown]
  - Head injury [Unknown]
  - Eye disorder [Unknown]
  - Diabetes mellitus [Unknown]
  - Foot deformity [Unknown]
  - Eye haemorrhage [Unknown]
  - Skull malformation [Unknown]
  - Scoliosis [Unknown]
  - Dysgraphia [Unknown]
  - Macroglossia [Unknown]
  - Nervous system disorder [Unknown]
  - Coma [Unknown]
  - Epilepsy [Unknown]
  - Cyanosis [Unknown]
  - Tongue movement disturbance [Unknown]
  - Drug dependence [Unknown]
  - Somnolence [Unknown]
  - Finger deformity [Unknown]
  - Cardiac murmur [Unknown]
  - Fall [Unknown]
  - Vital functions abnormal [Unknown]
  - Hyperacusis [Unknown]
  - Osteochondritis [Unknown]
  - Dysstasia [Unknown]

NARRATIVE: CASE EVENT DATE: 2003
